FAERS Safety Report 5619969-2 (Version None)
Quarter: 2008Q1

REPORT INFORMATION
  Report Type: 
  Country: None (occurrence: None)
  Receive Date: 20080208
  Receipt Date: 20080130
  Transmission Date: 20080703
  Serious: Yes (Death, Life-Threatening, Hospitalization)
  Sender: FDA-Public Use
  Company Number: DE-JNJFOC-20040906432

PATIENT
  Age: 57 Year
  Sex: Male

DRUGS (9)
  1. REMICADE [Suspect]
     Indication: RHEUMATOID ARTHRITIS
     Route: 042
  2. ETANERCEPT [Suspect]
  3. ETANERCEPT [Suspect]
  4. ETANERCEPT [Suspect]
     Indication: DRUG USE FOR UNKNOWN INDICATION
  5. RITUXIMAB [Suspect]
     Indication: DRUG USE FOR UNKNOWN INDICATION
  6. HCQ/CQ [Suspect]
  7. HCQ/CQ [Suspect]
  8. HCQ/CQ [Suspect]
     Indication: MALARIA PROPHYLAXIS
  9. PREDNISOLONE [Concomitant]
     Route: 048

REACTIONS (4)
  - BASAL CELL CARCINOMA [None]
  - DEATH [None]
  - MIXED HEPATOCELLULAR CHOLANGIOCARCINOMA [None]
  - STAPHYLOCOCCAL INFECTION [None]
